FAERS Safety Report 5640679-X (Version None)
Quarter: 2008Q1

REPORT INFORMATION
  Report Type: 
  Country: None (occurrence: None)
  Receive Date: 20080227
  Receipt Date: 20080128
  Transmission Date: 20080703
  Serious: No
  Sender: FDA-Public Use
  Company Number: US-BAXTER-2008BH000914

PATIENT
  Age: 32 Year
  Sex: Female

DRUGS (17)
  1. HEPARIN SODIUM [Suspect]
     Indication: INTRAVENOUS CATHETER MANAGEMENT
     Route: 065
     Dates: start: 20071101, end: 20071227
  2. HEPARIN SODIUM [Suspect]
     Route: 065
     Dates: start: 20071228
  3. HEPARIN SODIUM [Suspect]
     Route: 065
     Dates: start: 20071101, end: 20071227
  4. HEPARIN SODIUM [Suspect]
     Route: 065
     Dates: start: 20071228
  5. COUMADIN [Concomitant]
     Indication: DRUG USE FOR UNKNOWN INDICATION
     Dosage: DOSE UNIT:UNKNOWN
     Route: 065
  6. LISINOPRIL [Concomitant]
     Indication: DRUG USE FOR UNKNOWN INDICATION
     Dosage: DOSE UNIT:UNKNOWN
     Route: 065
  7. EPOGEN [Concomitant]
     Indication: DRUG USE FOR UNKNOWN INDICATION
     Dosage: DOSE UNIT:UNKNOWN
     Route: 065
  8. PEPCID [Concomitant]
     Indication: DRUG USE FOR UNKNOWN INDICATION
     Dosage: DOSE UNIT:UNKNOWN
     Route: 065
  9. PROCARDIA [Concomitant]
     Indication: DRUG USE FOR UNKNOWN INDICATION
     Dosage: DOSE UNIT:UNKNOWN
     Route: 065
  10. SENSIPAR [Concomitant]
     Indication: DRUG USE FOR UNKNOWN INDICATION
     Dosage: DOSE UNIT:UNKNOWN
     Route: 065
  11. FORSRENOL [Concomitant]
     Indication: DRUG USE FOR UNKNOWN INDICATION
     Dosage: DOSE UNIT:UNKNOWN
     Route: 065
  12. RENAGEL [Concomitant]
     Indication: DRUG USE FOR UNKNOWN INDICATION
     Dosage: DOSE UNIT:UNKNOWN
     Route: 065
  13. ATIVAN [Concomitant]
     Route: 042
     Dates: start: 20080110
  14. BENADRYL [Concomitant]
     Route: 042
     Dates: start: 20080110
  15. ZOFRAN [Concomitant]
     Route: 042
     Dates: start: 20080110
  16. ATIVAN [Concomitant]
     Route: 042
     Dates: start: 20080111
  17. BENADRYL [Concomitant]
     Route: 048
     Dates: start: 20080111

REACTIONS (6)
  - CHEST DISCOMFORT [None]
  - DIZZINESS [None]
  - FLUSHING [None]
  - NAUSEA [None]
  - TACHYCARDIA [None]
  - TREMOR [None]
